FAERS Safety Report 24297689 (Version 3)
Quarter: 2024Q3

REPORT INFORMATION
  Report Type: Spontaneous
  Country: US (occurrence: US)
  Receive Date: 20240909
  Receipt Date: 20240923
  Transmission Date: 20241017
  Serious: Yes (Other)
  Sender: ORGANON
  Company Number: US-ORGANON-O2409USA000441

PATIENT
  Sex: Female
  Weight: 75.749 kg

DRUGS (1)
  1. NEXPLANON [Suspect]
     Active Substance: ETONOGESTREL
     Indication: Contraception
     Dosage: 1 IMPLANT (68 MILLIGRAM) (LEFT UPPER ARM)
     Route: 059
     Dates: start: 20240207

REACTIONS (7)
  - Pregnancy with implant contraceptive [Recovered/Resolved]
  - Abortion induced [Unknown]
  - Unintended pregnancy [Recovered/Resolved]
  - Nausea [Recovering/Resolving]
  - Weight decreased [Recovering/Resolving]
  - Menstruation irregular [Recovering/Resolving]
  - Complication associated with device [Not Recovered/Not Resolved]

NARRATIVE: CASE EVENT DATE: 20240101
